FAERS Safety Report 9835368 (Version 1)
Quarter: 2014Q1

REPORT INFORMATION
  Report Type: Spontaneous
  Country: US (occurrence: US)
  Receive Date: 20140122
  Receipt Date: 20140122
  Transmission Date: 20141002
  Serious: No
  Sender: FDA-Public Use
  Company Number: US-BRISTOL-MYERS SQUIBB COMPANY-19510577

PATIENT
  Age: 92 Year
  Sex: Female
  Weight: 77.1 kg

DRUGS (5)
  1. ELIQUIS [Suspect]
     Indication: COAGULOPATHY
  2. ATENOLOL [Concomitant]
  3. TRIAMTERENE + HCTZ [Concomitant]
     Dosage: 1DF=37.5-25 MGCP
  4. OMEPRAZOLE [Concomitant]
  5. AMLODIPINE BESYLATE [Concomitant]

REACTIONS (4)
  - Faeces discoloured [Unknown]
  - Rectal haemorrhage [Unknown]
  - Drug dose omission [Unknown]
  - Drug prescribing error [Unknown]
